FAERS Safety Report 14673264 (Version 1)
Quarter: 2018Q1

REPORT INFORMATION
  Report Type: Report from Study
  Country: BR (occurrence: BR)
  Receive Date: 20180323
  Receipt Date: 20180323
  Transmission Date: 20180509
  Serious: Yes (Other)
  Sender: FDA-Public Use
  Company Number: PHHY2018BR042128

PATIENT
  Sex: Male
  Weight: 110 kg

DRUGS (3)
  1. DIOVAN HCT [Suspect]
     Active Substance: HYDROCHLOROTHIAZIDE\VALSARTAN
     Indication: HYPERTENSION
     Dosage: 1 DF (HYDROCHLOROTHIAZIDE 12.5 MG, VALSARTAN 320 MG), QD (PROBABLY BEEN MANY YEARS)
     Route: 065
  2. TIMOLOL MALEATE. [Concomitant]
     Active Substance: TIMOLOL MALEATE
     Indication: INTRAOCULAR PRESSURE TEST ABNORMAL
     Dosage: 1 DRP (0.5,UNITS NOT REPORTED), BID (ONE DROP IN THE MORNING AND AT NIGHT)(MORE THAN FIVE YEARS AGO)
     Route: 065
  3. TRAVATAN [Suspect]
     Active Substance: TRAVOPROST
     Indication: INTRAOCULAR PRESSURE INCREASED
     Dosage: 1 DRP (0.04, 2.5 ML), QN (IT HAS BEEN TWO DAYS)
     Route: 065

REACTIONS (2)
  - Intraocular pressure fluctuation [Not Recovered/Not Resolved]
  - Mental impairment [Not Recovered/Not Resolved]
